FAERS Safety Report 9328326 (Version 2)
Quarter: 2013Q2

REPORT INFORMATION
  Report Type: Spontaneous
  Country: US (occurrence: US)
  Receive Date: 20130604
  Receipt Date: 20130628
  Transmission Date: 20140414
  Serious: Yes (Other)
  Sender: FDA-Public Use
  Company Number: US-PFIZER INC-2013169153

PATIENT
  Age: 54 Year
  Sex: Male
  Weight: 63.49 kg

DRUGS (3)
  1. LYRICA [Suspect]
     Indication: CONVULSION
     Dosage: 75 MG, 2X/DAY
     Route: 048
  2. LYRICA [Suspect]
     Indication: PAIN
  3. SERTRALINE [Concomitant]
     Indication: DEPRESSION
     Dosage: UNK

REACTIONS (4)
  - Drug dose omission [Unknown]
  - Convulsion [Unknown]
  - Disorientation [Unknown]
  - Drug ineffective [Unknown]
